FAERS Safety Report 4668980-7 (Version None)
Quarter: 2005Q2

REPORT INFORMATION
  Report Type: 
  Country: None (occurrence: None)
  Receive Date: 20050523
  Receipt Date: 20050428
  Transmission Date: 20051028
  Serious: Yes (Hospitalization)
  Sender: FDA-Public Use
  Company Number: JP-GLAXOSMITHKLINE-B0380217A

PATIENT
  Age: 82 Year
  Sex: Male
  Weight: 50 kg

DRUGS (4)
  1. VALTREX [Suspect]
     Indication: HERPES ZOSTER
     Dosage: 1000MG THREE TIMES PER DAY
     Route: 048
     Dates: start: 20050416, end: 20050420
  2. HYPOCA [Concomitant]
     Route: 048
  3. OLMETEC [Concomitant]
     Route: 048
  4. BENZALIN [Concomitant]
     Route: 048

REACTIONS (7)
  - BLOOD CREATININE INCREASED [None]
  - CEREBELLAR ATAXIA [None]
  - DIFFICULTY IN WALKING [None]
  - DYSARTHRIA [None]
  - DYSSTASIA [None]
  - GAIT DISTURBANCE [None]
  - NEUROSIS [None]
